FAERS Safety Report 10278955 (Version 2)
Quarter: 2014Q3

REPORT INFORMATION
  Report Type: Spontaneous
  Country: US (occurrence: US)
  Receive Date: 20140706
  Receipt Date: 20140706
  Transmission Date: 20150326
  Serious: Yes (Hospitalization, Other)
  Sender: FDA-Public Use
  Company Number: US-BRISTOL-MYERS SQUIBB COMPANY-18553644

PATIENT
  Age: 52 Year
  Sex: Female
  Weight: 84.81 kg

DRUGS (25)
  1. MS CONTIN [Concomitant]
     Active Substance: MORPHINE SULFATE
     Indication: PAIN
     Dosage: 1DF = 30MG TABLET
  2. CISPLATIN. [Concomitant]
     Active Substance: CISPLATIN
  3. NAPROXEN. [Concomitant]
     Active Substance: NAPROXEN
  4. KADIAN [Concomitant]
     Active Substance: MORPHINE SULFATE
     Route: 048
  5. LASIX [Concomitant]
     Active Substance: FUROSEMIDE
     Dosage: TAB(FOR 3 DAYS)
     Route: 048
  6. HYDROXYZINE HCL [Concomitant]
     Active Substance: HYDROXYZINE HYDROCHLORIDE
     Dosage: 25MG TABLET
  7. ALBUTEROL SULFATE. [Concomitant]
     Active Substance: ALBUTEROL SULFATE
     Dosage: 1DF = 2 PUFFS?90MCG?HFA
  8. NOVOLOG [Concomitant]
     Active Substance: INSULIN ASPART
  9. HUMULIN 70/30 [Concomitant]
     Active Substance: INSULIN HUMAN
  10. PYRIDIUM [Concomitant]
     Active Substance: PHENAZOPYRIDINE
     Route: 048
  11. EMEND [Concomitant]
     Active Substance: APREPITANT
  12. AMITRIPTYLINE HCL [Concomitant]
     Active Substance: AMITRIPTYLINE
     Dosage: 1DF = 1 TAB?25MG
  13. ZOFRAN [Concomitant]
     Active Substance: ONDANSETRON HYDROCHLORIDE
     Indication: NAUSEA
     Route: 048
  14. LOVENOX [Concomitant]
     Active Substance: ENOXAPARIN SODIUM
     Dosage: TOTAL
     Route: 058
  15. COMPAZINE [Concomitant]
     Active Substance: PROCHLORPERAZINE MALEATE
     Route: 048
  16. KYTRIL [Concomitant]
     Active Substance: GRANISETRON HYDROCHLORIDE
     Dosage: 1MG TABLET
     Route: 048
  17. BYETTA [Suspect]
     Active Substance: EXENATIDE
     Indication: TYPE 2 DIABETES MELLITUS
     Route: 058
     Dates: start: 20060919, end: 20081016
  18. ACTOS [Concomitant]
     Active Substance: PIOGLITAZONE HYDROCHLORIDE
     Indication: DIABETES MELLITUS
     Dates: start: 2006
  19. GLUCOPHAGE [Concomitant]
     Active Substance: METFORMIN HYDROCHLORIDE
     Indication: DIABETES MELLITUS
  20. NEXIUM [Concomitant]
     Active Substance: ESOMEPRAZOLE MAGNESIUM
     Route: 048
  21. ATIVAN [Concomitant]
     Active Substance: LORAZEPAM
     Dosage: 0.5MG TABLET
  22. IPRATROPIUM BROMIDE. [Concomitant]
     Active Substance: IPRATROPIUM BROMIDE
     Dosage: 1DF = 0.2MG/ML
  23. GEMZAR [Concomitant]
     Active Substance: GEMCITABINE HYDROCHLORIDE
  24. ZANAFLEX [Concomitant]
     Active Substance: TIZANIDINE HYDROCHLORIDE
     Indication: MUSCLE SPASMS
  25. PERCOCET [Concomitant]
     Active Substance: ACETAMINOPHEN\OXYCODONE HYDROCHLORIDE
     Dosage: 1DF= 2TABS (2.5-325MG)
     Route: 048

REACTIONS (4)
  - Pancreatic carcinoma [Unknown]
  - Bladder transitional cell carcinoma [Unknown]
  - Pancreatitis [Unknown]
  - Insulin resistant diabetes [Unknown]

NARRATIVE: CASE EVENT DATE: 20081013
